FAERS Safety Report 7685745-2 (Version None)
Quarter: 2011Q3

REPORT INFORMATION
  Report Type: 
  Country: None (occurrence: None)
  Receive Date: 20110815
  Receipt Date: 20110815
  Transmission Date: 20111222
  Serious: Yes (Hospitalization)
  Sender: FDA-Public Use
  Company Number: None

PATIENT
  Age: 54 Year
  Sex: Female
  Weight: 100.69 kg

DRUGS (1)
  1. TC99M SESTAMIBI [Suspect]
     Indication: BREAST ENLARGEMENT
     Dosage: 28M CI
     Route: 042
     Dates: start: 20110803, end: 20110803

REACTIONS (5)
  - BRADYCARDIA [None]
  - THROAT TIGHTNESS [None]
  - HYPOTENSION [None]
  - SYNCOPE [None]
  - PRESYNCOPE [None]
